FAERS Safety Report 10218690 (Version 1)
Quarter: 2014Q2

REPORT INFORMATION
  Report Type: Spontaneous
  Country: US (occurrence: US)
  Receive Date: 20140605
  Receipt Date: 20140605
  Transmission Date: 20141212
  Serious: No
  Sender: FDA-Public Use
  Company Number: US-PFIZER INC-2014153425

PATIENT
  Sex: Female

DRUGS (2)
  1. NEURONTIN [Suspect]
     Indication: NEUROMYOTONIA
     Dosage: 300 MG, 2X/DAY
     Dates: start: 20140527
  2. NEURONTIN [Suspect]
     Indication: NEUROMYOTONIA

REACTIONS (4)
  - Intentional product misuse [Unknown]
  - Somnolence [Unknown]
  - Gait disturbance [Unknown]
  - Drug ineffective [Unknown]
